FAERS Safety Report 9325726 (Version 1)
Quarter: 2013Q2

REPORT INFORMATION
  Report Type: Spontaneous
  Country: US (occurrence: None)
  Receive Date: 20130603
  Receipt Date: 20130603
  Transmission Date: 20140414
  Serious: Yes (Death)
  Sender: FDA-Public Use
  Company Number: None

PATIENT
  Sex: Male

DRUGS (1)
  1. LORATIDINE [Suspect]
     Indication: MULTIPLE ALLERGIES
     Dosage: 10MG QD PO
     Route: 048
     Dates: start: 20130307

REACTIONS (1)
  - Death [None]
